FAERS Safety Report 19660337 (Version 1)
Quarter: 2021Q3

REPORT INFORMATION
  Report Type: Spontaneous
  Country: US (occurrence: US)
  Receive Date: 20210805
  Receipt Date: 20210805
  Transmission Date: 20211014
  Serious: No
  Sender: FDA-Public Use
  Company Number: None

PATIENT
  Age: 69 Year
  Sex: Female
  Weight: 78.4 kg

DRUGS (1)
  1. NEULASTA [Suspect]
     Active Substance: PEGFILGRASTIM
     Route: 058
     Dates: start: 20210722, end: 20210804

REACTIONS (3)
  - Therapy non-responder [None]
  - Neutrophil count abnormal [None]
  - White blood cell count abnormal [None]

NARRATIVE: CASE EVENT DATE: 20210804
